FAERS Safety Report 4808241-6 (Version None)
Quarter: 2005Q4

REPORT INFORMATION
  Report Type: 
  Country: None (occurrence: None)
  Receive Date: 20051021
  Receipt Date: 20040907
  Transmission Date: 20060501
  Serious: No
  Sender: FDA-Public Use
  Company Number: EWC041041195

PATIENT
  Age: 80 Year
  Sex: Male

DRUGS (1)
  1. OLANZAPINE [Suspect]
     Dosage: 20 MG

REACTIONS (2)
  - LEUKOPENIA [None]
  - RED BLOOD CELL COUNT DECREASED [None]
